FAERS Safety Report 7488799-1 (Version None)
Quarter: 2011Q2

REPORT INFORMATION
  Report Type: 
  Country: None (occurrence: None)
  Receive Date: 20110518
  Receipt Date: 20110512
  Transmission Date: 20111010
  Serious: Yes (Hospitalization)
  Sender: FDA-Public Use
  Company Number: FR-EISAI INC-E2020-09172-SPO-FR

PATIENT
  Sex: Female

DRUGS (1)
  1. ARICEPT [Suspect]
     Route: 048

REACTIONS (3)
  - SYNCOPE [None]
  - HEAD INJURY [None]
  - LOSS OF CONSCIOUSNESS [None]
